FAERS Safety Report 12644838 (Version 2)
Quarter: 2017Q1

REPORT INFORMATION
  Report Type: Report from Study
  Country: US (occurrence: US)
  Receive Date: 20160811
  Receipt Date: 20170123
  Transmission Date: 20170428
  Serious: Yes (Hospitalization)
  Sender: FDA-Public Use
  Company Number: US-BIOGEN-2016BI00277520

PATIENT
  Sex: Female

DRUGS (1)
  1. TECFIDERA [Suspect]
     Active Substance: DIMETHYL FUMARATE
     Indication: MULTIPLE SCLEROSIS
     Route: 065
     Dates: start: 20141028, end: 201608

REACTIONS (5)
  - Headache [Unknown]
  - Fall [Recovered/Resolved]
  - Accidental underdose [Recovered/Resolved]
  - Dysstasia [Recovered/Resolved]
  - Multiple sclerosis relapse [Unknown]
